FAERS Safety Report 7523145-6 (Version None)
Quarter: 2011Q2

REPORT INFORMATION
  Report Type: 
  Country: None (occurrence: None)
  Receive Date: 20110603
  Receipt Date: 20110520
  Transmission Date: 20111010
  Serious: Yes (Other)
  Sender: FDA-Public Use
  Company Number: A0924172A

PATIENT
  Age: 60 Year
  Sex: Female

DRUGS (1)
  1. ALLI [Suspect]
     Route: 048
     Dates: start: 20110101

REACTIONS (9)
  - FINGER DEFORMITY [None]
  - PARAESTHESIA [None]
  - DIARRHOEA [None]
  - JOINT LOCK [None]
  - PRODUCT QUALITY ISSUE [None]
  - ABDOMINAL PAIN UPPER [None]
  - GASTROENTERITIS [None]
  - HYPOAESTHESIA [None]
  - VOMITING [None]
